FAERS Safety Report 8225947-X (Version None)
Quarter: 2012Q1

REPORT INFORMATION
  Report Type: 
  Country: None (occurrence: None)
  Receive Date: 20120321
  Receipt Date: 20120316
  Transmission Date: 20120608
  Serious: Yes (Hospitalization)
  Sender: FDA-Public Use
  Company Number: JP-PFIZER INC-2012070122

PATIENT
  Age: 60 Year
  Sex: Male

DRUGS (2)
  1. TRAMADOL HYDROCHLORIDE [Concomitant]
     Dosage: UNK
  2. LYRICA [Suspect]
     Dosage: UNK
     Route: 048

REACTIONS (2)
  - DYSCHEZIA [None]
  - DYSURIA [None]
